FAERS Safety Report 11754376 (Version 1)
Quarter: 2015Q4

REPORT INFORMATION
  Report Type: Spontaneous
  Country: US (occurrence: None)
  Receive Date: 20151118
  Receipt Date: 20151118
  Transmission Date: 20160304
  Serious: Yes (Hospitalization)
  Sender: FDA-Public Use
  Company Number: None

PATIENT
  Age: 65 Year
  Sex: Male
  Weight: 70.1 kg

DRUGS (1)
  1. WARFARIN [Suspect]
     Active Substance: WARFARIN
     Indication: PULMONARY EMBOLISM
     Route: 048
     Dates: start: 20100608, end: 20130427

REACTIONS (2)
  - Gastric haemorrhage [None]
  - International normalised ratio abnormal [None]

NARRATIVE: CASE EVENT DATE: 20130430
